FAERS Safety Report 8936036 (Version 1)
Quarter: 2012Q4

REPORT INFORMATION
  Report Type: 
  Country: US (occurrence: US)
  Receive Date: 20121130
  Receipt Date: 20121130
  Transmission Date: 20130627
  Serious: No
  Sender: FDA-Public Use
  Company Number: US-PFIZER INC-2012297295

PATIENT
  Age: 70 Year
  Sex: Male

DRUGS (6)
  1. EFFEXOR [Suspect]
     Indication: DEPRESSION
     Dosage: 300 mg, 1x/day
     Dates: start: 20120723, end: 2012
  2. EFFEXOR [Suspect]
     Dosage: 225 mg, 1x/day
     Dates: start: 2012, end: 20121111
  3. EFFEXOR [Suspect]
     Dosage: 150 mg, 1x/day
     Dates: start: 20121112
  4. VIIBRYD [Suspect]
     Indication: DEPRESSION
     Dosage: 10 mg, 1 in 1 D
     Route: 048
     Dates: start: 20121112
  5. METFORMIN [Concomitant]
     Indication: DIABETES
     Dosage: UNK
  6. GLIPIZIDE [Concomitant]
     Indication: DEPRESSION
     Dosage: UNK

REACTIONS (5)
  - Headache [Not Recovered/Not Resolved]
  - Feeling abnormal [Not Recovered/Not Resolved]
  - Anxiety [Not Recovered/Not Resolved]
  - Abdominal discomfort [Not Recovered/Not Resolved]
  - Nausea [Unknown]
